FAERS Safety Report 12041383 (Version 2)
Quarter: 2016Q2

REPORT INFORMATION
  Report Type: Spontaneous
  Country: US (occurrence: US)
  Receive Date: 20160208
  Receipt Date: 20160406
  Transmission Date: 20160815
  Serious: No
  Sender: FDA-Public Use
  Company Number: US-PFIZER INC-2015241274

PATIENT
  Age: 62 Year
  Sex: Female

DRUGS (1)
  1. IBRANCE [Suspect]
     Active Substance: PALBOCICLIB
     Indication: BREAST CANCER
     Dosage: 125 MG, ONCE PER DAY (FOR 21 OUT OF 28 DAYS)
     Route: 048

REACTIONS (3)
  - Hyperhidrosis [Unknown]
  - Rhinorrhoea [Not Recovered/Not Resolved]
  - Nasopharyngitis [Not Recovered/Not Resolved]
